FAERS Safety Report 23582773 (Version 3)
Quarter: 2024Q2

REPORT INFORMATION
  Report Type: Spontaneous
  Country: DE (occurrence: DE)
  Receive Date: 20240301
  Receipt Date: 20240408
  Transmission Date: 20240716
  Serious: Yes (Life-Threatening, Hospitalization, Other)
  Sender: FDA-Public Use
  Company Number: DE-PFIZER INC-PV202400020817

PATIENT
  Age: 43 Year
  Sex: Female
  Weight: 61 kg

DRUGS (7)
  1. LEVETIRACETAM [Suspect]
     Active Substance: LEVETIRACETAM
     Indication: Metastases to central nervous system
     Dosage: 2000 MILLIGRAM, ONCE A DAY
     Route: 065
     Dates: start: 202110
  2. CAPECITABINE [Suspect]
     Active Substance: CAPECITABINE
     Indication: Breast cancer
     Dosage: 3300 MILLIGRAM, ONCE A DAY 1650 MG, 2X/DAY
     Route: 065
     Dates: start: 20231106
  3. TRASTUZUMAB [Suspect]
     Active Substance: TRASTUZUMAB
     Indication: Breast cancer
     Dosage: UNK
     Route: 065
     Dates: start: 20231106
  4. TRASTUZUMAB [Suspect]
     Active Substance: TRASTUZUMAB
     Dosage: 6 MILLIGRAM/KILOGRAM EVERY 3 WEEKS
     Route: 042
     Dates: start: 20230620, end: 20240130
  5. TUKYSA [Suspect]
     Active Substance: TUCATINIB
     Indication: Breast cancer
     Dosage: 600 MILLIGRAM, ONCE A DAY (300 M)
     Route: 065
     Dates: start: 20231106
  6. PANTOPRAZOLE [Concomitant]
     Active Substance: PANTOPRAZOLE
     Indication: Product used for unknown indication
     Dosage: 20 MILLIGRAM, ONCE A DAY
     Route: 065
  7. GRANISETRONE [Concomitant]
     Indication: Nausea
     Dosage: 3.1 MILLIGRAM, ONCE A DAY (EVERY 5 DAYS, DURING CAPECITABINE INTAKE)
     Route: 062
     Dates: start: 202311

REACTIONS (5)
  - Ventricular fibrillation [Recovered/Resolved]
  - Cardiac arrest [Recovered/Resolved]
  - Circulatory collapse [Recovered/Resolved]
  - Ejection fraction decreased [Not Recovered/Not Resolved]
  - Psychological trauma [Not Recovered/Not Resolved]

NARRATIVE: CASE EVENT DATE: 20240202
